FAERS Safety Report 9203255 (Version 2)
Quarter: 2013Q2

REPORT INFORMATION
  Report Type: Spontaneous
  Country: US (occurrence: US)
  Receive Date: 20130402
  Receipt Date: 20130415
  Transmission Date: 20140414
  Serious: Yes (Life-Threatening, Other)
  Sender: FDA-Public Use
  Company Number: US-ACCORD-016989

PATIENT
  Age: 70 Year
  Sex: Male
  Weight: 108.18 kg

DRUGS (8)
  1. GEMCITABINE [Suspect]
     Indication: PANCREATIC CARCINOMA
     Route: 042
     Dates: start: 20121106
  2. ALEVE [Concomitant]
     Route: 048
  3. FISH OIL [Concomitant]
     Route: 048
  4. ASA [Concomitant]
     Route: 048
  5. LASIX [Concomitant]
     Route: 048
  6. LISINOPRIL/HYDROCHLORTHIAZID [Concomitant]
     Dosage: 10/12.5 MG
     Route: 048
  7. AMBIEN [Concomitant]
     Route: 048
  8. CENTRUM SILVER [Concomitant]
     Route: 048

REACTIONS (4)
  - Oedema peripheral [Not Recovered/Not Resolved]
  - Weight increased [Not Recovered/Not Resolved]
  - Renal failure [Not Recovered/Not Resolved]
  - Liver function test abnormal [Not Recovered/Not Resolved]
